FAERS Safety Report 23312527 (Version 2)
Quarter: 2024Q1

REPORT INFORMATION
  Report Type: Report from Study
  Country: US (occurrence: US)
  Receive Date: 20231219
  Receipt Date: 20240101
  Transmission Date: 20240409
  Serious: Yes (Death, Other)
  Sender: FDA-Public Use
  Company Number: US-SA-SAC20231218001121

PATIENT
  Age: 64 Year
  Sex: Female

DRUGS (36)
  1. DUPILUMAB [Suspect]
     Active Substance: DUPILUMAB
     Indication: Dermatitis
     Dosage: 300 MG, QOW
     Route: 058
  2. DUPILUMAB [Suspect]
     Active Substance: DUPILUMAB
     Indication: Eczema
  3. TRULICITY [Concomitant]
     Active Substance: DULAGLUTIDE
  4. DETROL LA [Concomitant]
     Active Substance: TOLTERODINE TARTRATE
  5. AMBIEN CR [Concomitant]
     Active Substance: ZOLPIDEM TARTRATE
  6. ZYRTEC [Concomitant]
     Active Substance: CETIRIZINE HYDROCHLORIDE
  7. ZOLOFT [Concomitant]
     Active Substance: SERTRALINE HYDROCHLORIDE
  8. NORVASC [Concomitant]
     Active Substance: AMLODIPINE BESYLATE
  9. LYRICA [Concomitant]
     Active Substance: PREGABALIN
  10. LANTUS [Concomitant]
     Active Substance: INSULIN GLARGINE
  11. ATENOLOL [Concomitant]
     Active Substance: ATENOLOL
  12. ATORVASTATIN CALCIUM [Concomitant]
     Active Substance: ATORVASTATIN CALCIUM
  13. TRELEGY ELLIPTA [Concomitant]
     Active Substance: FLUTICASONE FUROATE\UMECLIDINIUM BROMIDE\VILANTEROL TRIFENATATE
  14. VALACYCLOVIR [Concomitant]
     Active Substance: VALACYCLOVIR HYDROCHLORIDE
  15. MESALAMINE [Concomitant]
     Active Substance: MESALAMINE
  16. NIACIN [Concomitant]
     Active Substance: NIACIN
  17. AMITRIPTYLINE HYDROCHLORIDE [Concomitant]
     Active Substance: AMITRIPTYLINE HYDROCHLORIDE
  18. TRIAMCINOLONE ACETONIDE [Concomitant]
     Active Substance: TRIAMCINOLONE ACETONIDE
  19. VITAMIN D3 [Concomitant]
     Active Substance: CHOLECALCIFEROL
  20. FOLIC ACID [Concomitant]
     Active Substance: FOLIC ACID
  21. ASPIRIN [Concomitant]
     Active Substance: ASPIRIN
  22. FISH OIL [Concomitant]
     Active Substance: FISH OIL
  23. CLOBETASOL PROPIONATE [Concomitant]
     Active Substance: CLOBETASOL PROPIONATE
  24. SUCRALFATE [Concomitant]
     Active Substance: SUCRALFATE
  25. BIOTIN [Concomitant]
     Active Substance: BIOTIN
  26. CULTURELLE [Concomitant]
     Active Substance: LACTOBACILLUS RHAMNOSUS
  27. CYANOCOBALAMIN [Concomitant]
     Active Substance: CYANOCOBALAMIN
  28. CYANOCOBALAMIN [Concomitant]
     Active Substance: CYANOCOBALAMIN
     Dosage: 40MG
  29. BUTRANS [Concomitant]
     Active Substance: BUPRENORPHINE
  30. VALPROIC ACID [Concomitant]
     Active Substance: VALPROIC ACID
     Dosage: 1MG
  31. ARIMIDEX [Concomitant]
     Active Substance: ANASTROZOLE
  32. PERCOCET [Concomitant]
     Active Substance: ACETAMINOPHEN\OXYCODONE HYDROCHLORIDE
  33. ULORIC [Concomitant]
     Active Substance: FEBUXOSTAT
  34. VITAMIN B COMPLEX [Concomitant]
     Active Substance: CYANOCOBALAMIN\DEXPANTHENOL\NIACINAMIDE\PYRIDOXINE HYDROCHLORIDE\RIBOFLAVIN 5^-PHOSPHATE SODIUM\THIA
  35. VITAMIN C [Concomitant]
     Active Substance: ASCORBIC ACID
  36. OXYGEN [Concomitant]
     Active Substance: OXYGEN

REACTIONS (2)
  - Death [Fatal]
  - Product use in unapproved indication [Unknown]

NARRATIVE: CASE EVENT DATE: 20230813
